FAERS Safety Report 8358735 (Version 2)
Quarter: 2014Q1

REPORT INFORMATION
  Report Type: Spontaneous
  Country: US (occurrence: US)
  Receive Date: 20120127
  Receipt Date: 20140225
  Transmission Date: 20141002
  Serious: Yes (Hospitalization, Other)
  Sender: FDA-Public Use
  Company Number: US-ROCHE-795564

PATIENT
  Age: 22 Year
  Sex: Female
  Weight: 79.45 kg

DRUGS (2)
  1. ACCUTANE [Suspect]
     Indication: ACNE
     Route: 065
     Dates: start: 199610, end: 199612
  2. ACCUTANE [Suspect]
     Route: 065

REACTIONS (11)
  - Colitis ulcerative [Unknown]
  - Crohn^s disease [Unknown]
  - Female genital tract fistula [Unknown]
  - Bipolar disorder [Unknown]
  - Depression [Unknown]
  - Inflammatory bowel disease [Unknown]
  - Suicidal ideation [Unknown]
  - Anal fissure [Unknown]
  - Large intestine polyp [Unknown]
  - Pyoderma gangrenosum [Recovering/Resolving]
  - Irritable bowel syndrome [Unknown]
